FAERS Safety Report 8984229 (Version 1)
Quarter: 2012Q4

REPORT INFORMATION
  Report Type: Spontaneous
  Country: US (occurrence: None)
  Receive Date: 20121214
  Receipt Date: 20121214
  Transmission Date: 20130627
  Serious: Yes (Death)
  Sender: FDA-Public Use
  Company Number: UTC-026474

PATIENT
  Age: 47 Year
  Sex: Female
  Weight: 40.9 kg

DRUGS (2)
  1. TYVASO (6 MICROGRAM, AEROSOL FOR INHALATION) (TREPROSTINIL SODIUM) [Suspect]
     Indication: PRIMARY PULMONARY HYPERTENSION
     Dosage: (54 mcg)
     Route: 055
     Dates: start: 20111117
  2. LETAIRIS (AMBRISEN-TAN) [Concomitant]

REACTIONS (1)
  - Death [None]
